FAERS Safety Report 24077788 (Version 1)
Quarter: 2024Q3

REPORT INFORMATION
  Report Type: Spontaneous
  Country: JP (occurrence: JP)
  Receive Date: 20240711
  Receipt Date: 20240711
  Transmission Date: 20241017
  Serious: Yes (Hospitalization)
  Sender: ROCHE
  Company Number: JP-ROCHE-10000021201

PATIENT
  Age: 74 Year
  Sex: Female
  Weight: 49 kg

DRUGS (21)
  1. RITUXAN [Suspect]
     Active Substance: RITUXIMAB
     Indication: Follicle centre lymphoma, follicular grade I, II, III
     Route: 042
     Dates: start: 20130801
  2. RITUXAN [Suspect]
     Active Substance: RITUXIMAB
     Route: 042
     Dates: start: 20150602
  3. RITUXAN [Suspect]
     Active Substance: RITUXIMAB
     Route: 042
     Dates: start: 20190627, end: 20191024
  4. RITUXAN [Suspect]
     Active Substance: RITUXIMAB
     Route: 042
     Dates: start: 20220304
  5. RITUXAN [Suspect]
     Active Substance: RITUXIMAB
     Route: 042
     Dates: start: 20230221, end: 20230515
  6. KYMRIAH [Concomitant]
     Active Substance: TISAGENLECLEUCEL
     Indication: Follicle centre lymphoma, follicular grade I, II, III
     Dates: start: 20231023, end: 20231023
  7. IBRITUMOMAB TIUXETAN [Concomitant]
     Active Substance: IBRITUMOMAB TIUXETAN
     Indication: Follicle centre lymphoma, follicular grade I, II, III
     Dates: start: 20170328
  8. PREDNISOLONE [Concomitant]
     Active Substance: PREDNISOLONE
     Indication: Follicle centre lymphoma, follicular grade I, II, III
     Dates: start: 20190627, end: 20191024
  9. VINCRISTINE SULFATE [Concomitant]
     Active Substance: VINCRISTINE SULFATE
     Indication: Follicle centre lymphoma, follicular grade I, II, III
  10. DOXORUBICIN HYDROCHLORIDE [Concomitant]
     Active Substance: DOXORUBICIN HYDROCHLORIDE
     Indication: Follicle centre lymphoma, follicular grade I, II, III
  11. BENDAMUSTINE HYDROCHLORIDE [Concomitant]
     Active Substance: BENDAMUSTINE HYDROCHLORIDE
     Indication: Follicle centre lymphoma, follicular grade I, II, III
  12. OBINUTUZUMAB [Concomitant]
     Active Substance: OBINUTUZUMAB
     Indication: Follicle centre lymphoma, follicular grade I, II, III
  13. GEMCITABINE HYDROCHLORIDE [Concomitant]
     Active Substance: GEMCITABINE HYDROCHLORIDE
     Indication: Follicle centre lymphoma, follicular grade I, II, III
  14. CISPLATIN [Concomitant]
     Active Substance: CISPLATIN
     Indication: Follicle centre lymphoma, follicular grade I, II, III
  15. DEXAMETHASONE SODIUM PHOSPHATE [Concomitant]
     Active Substance: DEXAMETHASONE PHOSPHATE\DEXAMETHASONE SODIUM PHOSPHATE
     Indication: Follicle centre lymphoma, follicular grade I, II, III
  16. ETOPOSIDE [Concomitant]
     Active Substance: ETOPOSIDE
     Indication: Follicle centre lymphoma, follicular grade I, II, III
  17. IFOSFAMIDE [Concomitant]
     Active Substance: IFOSFAMIDE
     Indication: Follicle centre lymphoma, follicular grade I, II, III
  18. CARBOPLATIN [Concomitant]
     Active Substance: CARBOPLATIN
     Indication: Follicle centre lymphoma, follicular grade I, II, III
  19. TAZVERIK [Concomitant]
     Active Substance: TAZEMETOSTAT HYDROBROMIDE
     Indication: Follicle centre lymphoma, follicular grade I, II, III
  20. FLUDARABINE PHOSPHATE [Concomitant]
     Active Substance: FLUDARABINE PHOSPHATE
     Indication: Follicle centre lymphoma, follicular grade I, II, III
  21. EVUSHELD [Concomitant]
     Active Substance: CILGAVIMAB\TIXAGEVIMAB
     Indication: COVID-19 prophylaxis

REACTIONS (1)
  - COVID-19 [Unknown]
